FAERS Safety Report 11682454 (Version 1)
Quarter: 2015Q4

REPORT INFORMATION
  Report Type: Spontaneous
  Country: US (occurrence: None)
  Receive Date: 20151028
  Receipt Date: 20151028
  Transmission Date: 20160304
  Serious: Yes (Hospitalization)
  Sender: FDA-Public Use
  Company Number: None

PATIENT
  Age: 69 Year
  Sex: Male
  Weight: 75.39 kg

DRUGS (16)
  1. LASIX [Concomitant]
     Active Substance: FUROSEMIDE
  2. SPIRONOLACTONE. [Concomitant]
     Active Substance: SPIRONOLACTONE
  3. RIBAVIRIN 1000MG [Suspect]
     Active Substance: RIBAVIRIN
     Route: 048
     Dates: start: 20150319, end: 20150417
  4. OXYCODONE [Concomitant]
     Active Substance: OXYCODONE
  5. PROBIOTIC [Concomitant]
     Active Substance: PROBIOTICS NOS
  6. MULTIVITAMIN [Concomitant]
     Active Substance: VITAMINS
  7. NADOLOL. [Concomitant]
     Active Substance: NADOLOL
  8. HARVONI [Suspect]
     Active Substance: LEDIPASVIR\SOFOSBUVIR
     Dosage: 90/400MG QD
     Route: 048
     Dates: start: 20150319, end: 20150428
  9. OFLOXACIN. [Concomitant]
     Active Substance: OFLOXACIN
  10. XIFAXAN [Concomitant]
     Active Substance: RIFAXIMIN
  11. FLONASE [Concomitant]
     Active Substance: FLUTICASONE PROPIONATE
  12. CIPROFLOXACIN. [Concomitant]
     Active Substance: CIPROFLOXACIN
  13. LACTULOSE. [Concomitant]
     Active Substance: LACTULOSE
  14. LEVAQUIN [Concomitant]
     Active Substance: LEVOFLOXACIN
  15. ZYRTEC [Concomitant]
     Active Substance: CETIRIZINE HYDROCHLORIDE
  16. CORTISPORI [Concomitant]

REACTIONS (6)
  - Dizziness [None]
  - Acute kidney injury [None]
  - Dyspnoea [None]
  - Fatigue [None]
  - Hypovolaemia [None]
  - Haemolytic anaemia [None]

NARRATIVE: CASE EVENT DATE: 20150417
